FAERS Safety Report 7764545-9 (Version None)
Quarter: 2011Q3

REPORT INFORMATION
  Report Type: 
  Country: None (occurrence: None)
  Receive Date: 20110921
  Receipt Date: 20110914
  Transmission Date: 20111222
  Serious: Yes (Other)
  Sender: FDA-Public Use
  Company Number: DE-PFIZER INC-2011217875

PATIENT
  Age: 52 Year
  Sex: Female

DRUGS (2)
  1. AROMASIN [Suspect]
     Indication: BREAST CANCER
     Dosage: UNK
  2. CORTISONE [Concomitant]

REACTIONS (4)
  - HEPATITIS [None]
  - RASH [None]
  - JAUNDICE [None]
  - PYREXIA [None]
